FAERS Safety Report 8260875-5 (Version None)
Quarter: 2012Q2

REPORT INFORMATION
  Report Type: 
  Country: None (occurrence: None)
  Receive Date: 20120405
  Receipt Date: 20120330
  Transmission Date: 20120825
  Serious: Yes (Other)
  Sender: FDA-Public Use
  Company Number: GB-ACCORD-012929

PATIENT
  Age: 66 Year
  Sex: Male

DRUGS (3)
  1. AMLODIPINE [Suspect]
     Indication: HYPERTENSION
     Route: 048
  2. ASPIRIN [Concomitant]
     Dosage: ONGOING.
     Route: 048
  3. SIMVASTATIN [Suspect]
     Route: 048
     Dates: start: 20110101

REACTIONS (2)
  - NOCTURIA [None]
  - CHILLS [None]
